FAERS Safety Report 7693705-0 (Version None)
Quarter: 2011Q3

REPORT INFORMATION
  Report Type: 
  Country: None (occurrence: None)
  Receive Date: 20110819
  Receipt Date: 20110810
  Transmission Date: 20111222
  Serious: Yes (Other)
  Sender: FDA-Public Use
  Company Number: US-JNJFOC-20110805550

PATIENT
  Sex: Female
  Weight: 72.58 kg

DRUGS (12)
  1. XANAX [Concomitant]
     Indication: ANXIETY
     Route: 048
  2. LEXAPRO [Concomitant]
     Indication: DEPRESSION
     Route: 048
  3. REMERON [Concomitant]
     Indication: SLEEP DISORDER
     Route: 048
  4. METHOTREXATE [Concomitant]
     Indication: RHEUMATOID ARTHRITIS
     Route: 058
  5. PLAQUENIL [Suspect]
     Indication: RHEUMATOID ARTHRITIS
     Route: 048
     Dates: end: 20101201
  6. LIPITOR [Concomitant]
     Indication: CARDIAC DISORDER
     Route: 048
  7. LEVOXYL [Concomitant]
     Indication: THYROID DISORDER
     Route: 048
  8. NEXIUM [Concomitant]
     Indication: GASTROOESOPHAGEAL REFLUX DISEASE
     Route: 048
  9. VITAMIN TAB [Concomitant]
     Indication: MEDICAL DIET
     Route: 048
  10. CORGARD [Concomitant]
     Indication: CARDIAC DISORDER
     Route: 048
  11. ASPIRIN [Concomitant]
     Indication: CARDIAC DISORDER
     Route: 048
  12. REMICADE [Suspect]
     Indication: RHEUMATOID ARTHRITIS
     Route: 042
     Dates: start: 20090101

REACTIONS (5)
  - MUSCULOSKELETAL STIFFNESS [None]
  - LACERATION [None]
  - NODULE [None]
  - SKIN LESION [None]
  - COLOUR BLINDNESS ACQUIRED [None]
